FAERS Safety Report 5885801-5 (Version None)
Quarter: 2008Q3

REPORT INFORMATION
  Report Type: 
  Country: None (occurrence: None)
  Receive Date: 20080917
  Receipt Date: 20080904
  Transmission Date: 20090109
  Serious: Yes (Hospitalization)
  Sender: FDA-Public Use
  Company Number: DE-JNJFOC-20080901159

PATIENT
  Sex: Female

DRUGS (9)
  1. HALDOL [Suspect]
     Route: 048
  2. HALDOL [Suspect]
     Indication: SCHIZOPHRENIA, PARANOID TYPE
     Route: 048
  3. DIAZEPAM [Interacting]
     Route: 048
  4. DIAZEPAM [Interacting]
     Indication: SCHIZOPHRENIA, PARANOID TYPE
     Route: 048
  5. LEPONEX [Interacting]
     Route: 048
  6. LEPONEX [Interacting]
     Indication: SCHIZOPHRENIA, PARANOID TYPE
     Route: 048
  7. MELNEURIN [Concomitant]
     Indication: SCHIZOPHRENIA, PARANOID TYPE
     Route: 048
  8. CANDIO HERMAL [Concomitant]
     Route: 003
  9. ASPIRIN [Concomitant]
     Route: 048

REACTIONS (2)
  - DRUG INTERACTION [None]
  - HEPATITIS ACUTE [None]
